FAERS Safety Report 8923376 (Version 4)
Quarter: 2013Q3

REPORT INFORMATION
  Report Type: Spontaneous
  Country: JP (occurrence: JP)
  Receive Date: 20121123
  Receipt Date: 20130711
  Transmission Date: 20140515
  Serious: Yes (Disabling)
  Sender: FDA-Public Use
  Company Number: JP-JNJFOC-20121108642

PATIENT
  Age: 36 Year
  Sex: Male

DRUGS (8)
  1. INTELENCE [Suspect]
     Indication: HIV INFECTION
     Route: 048
     Dates: start: 20121023, end: 20121106
  2. ISENTRESS [Suspect]
     Indication: HIV INFECTION
     Route: 048
     Dates: start: 20121023, end: 20121105
  3. EPIVIR [Concomitant]
     Indication: HIV INFECTION
     Route: 048
     Dates: start: 20121107
  4. ZERIT [Concomitant]
     Indication: HIV INFECTION
     Route: 048
     Dates: start: 20121107
  5. NORVIR [Concomitant]
     Indication: HIV INFECTION
     Route: 048
     Dates: start: 20121107
  6. INVIRASE [Concomitant]
     Indication: HIV INFECTION
     Route: 048
     Dates: start: 20121107
  7. AMOBAN [Concomitant]
     Indication: INSOMNIA
     Route: 048
     Dates: start: 20121023
  8. HALCION [Concomitant]
     Indication: INSOMNIA
     Route: 048
     Dates: start: 20121023

REACTIONS (8)
  - Nervous system disorder [Recovering/Resolving]
  - Hypoaesthesia [Recovering/Resolving]
  - Mental disorder [Recovering/Resolving]
  - Balance disorder [Recovering/Resolving]
  - Thermohypoaesthesia [Recovering/Resolving]
  - Weight decreased [Recovering/Resolving]
  - Insomnia [Recovering/Resolving]
  - Decreased appetite [Recovering/Resolving]
